FAERS Safety Report 11099073 (Version 2)
Quarter: 2015Q2

REPORT INFORMATION
  Report Type: Spontaneous
  Country: US (occurrence: US)
  Receive Date: 20150508
  Receipt Date: 20150612
  Transmission Date: 20150821
  Serious: Yes (Hospitalization, Other)
  Sender: FDA-Public Use
  Company Number: US-AMGEN-USASP2015044576

PATIENT
  Age: 20 Year
  Sex: Female
  Weight: 68.2 kg

DRUGS (1)
  1. ENBREL [Suspect]
     Active Substance: ETANERCEPT
     Indication: JUVENILE IDIOPATHIC ARTHRITIS
     Dosage: 50 MG, QWK
     Route: 065
     Dates: start: 1997

REACTIONS (5)
  - Foetal macrosomia [Unknown]
  - Condition aggravated [Unknown]
  - Pregnancy [Recovered/Resolved]
  - Gastrooesophageal reflux disease [Unknown]
  - Caesarean section [Recovered/Resolved]

NARRATIVE: CASE EVENT DATE: 20060919
